FAERS Safety Report 6297421-1 (Version None)
Quarter: 2009Q3

REPORT INFORMATION
  Report Type: 
  Country: None (occurrence: None)
  Receive Date: 20090805
  Receipt Date: 20090325
  Transmission Date: 20100115
  Serious: No
  Sender: FDA-Public Use
  Company Number: US-BAYER-200917488NA

PATIENT
  Age: 29 Year
  Sex: Female
  Weight: 79 kg

DRUGS (6)
  1. ULTRAVIST (PHARMACY BULK) [Suspect]
     Indication: COMPUTERISED TOMOGRAM
     Dosage: TOTAL DAILY DOSE: 120 ML  UNIT DOSE: 500 ML
     Route: 042
     Dates: start: 20090324, end: 20090324
  2. NEURONTIN [Concomitant]
  3. EFFEXOR XR [Concomitant]
  4. TRI-SPRINTEC [Concomitant]
  5. TRAZODONE HCL [Concomitant]
  6. VOLUMEN [Concomitant]
     Route: 048
     Dates: start: 20090324, end: 20090324

REACTIONS (3)
  - PRURITUS [None]
  - THROAT TIGHTNESS [None]
  - URTICARIA [None]
